FAERS Safety Report 10036052 (Version 3)
Quarter: 2014Q2

REPORT INFORMATION
  Report Type: Spontaneous
  Country: IN (occurrence: IN)
  Receive Date: 20140325
  Receipt Date: 20140618
  Transmission Date: 20141212
  Serious: Yes (Hospitalization, Other)
  Sender: FDA-Public Use
  Company Number: IN-ABBVIE-14P-078-1215892-00

PATIENT
  Sex: Male

DRUGS (5)
  1. NORVIR [Suspect]
     Indication: HIV INFECTION
  2. TRUVADA [Suspect]
     Indication: HIV INFECTION
  3. REYATAZ [Suspect]
     Indication: HIV INFECTION
  4. REYATAZ [Suspect]
  5. PANTOPRAZOLE [Suspect]
     Indication: PRODUCT USED FOR UNKNOWN INDICATION

REACTIONS (4)
  - Suicidal ideation [Unknown]
  - Depressed mood [Unknown]
  - Gastroenteritis [Recovered/Resolved]
  - Drug intolerance [Unknown]
